FAERS Safety Report 17622895 (Version 3)
Quarter: 2020Q4

REPORT INFORMATION
  Report Type: Spontaneous
  Country: US (occurrence: US)
  Receive Date: 20200403
  Receipt Date: 20201020
  Transmission Date: 20210113
  Serious: Yes (Other)
  Sender: FDA-Public Use
  Company Number: US-PFIZER INC-2020136139

PATIENT
  Age: 55 Year
  Sex: Female

DRUGS (2)
  1. XELJANZ [Suspect]
     Active Substance: TOFACITINIB CITRATE
     Indication: RHEUMATOID ARTHRITIS
     Dosage: 5 MG, 2X/DAY
     Route: 048
     Dates: start: 202001
  2. XELJANZ [Suspect]
     Active Substance: TOFACITINIB CITRATE
     Indication: ALOPECIA

REACTIONS (9)
  - Trigger finger [Unknown]
  - Rheumatoid arthritis [Not Recovered/Not Resolved]
  - Muscle spasms [Unknown]
  - Stress [Unknown]
  - Pain [Recovered/Resolved]
  - Energy increased [Unknown]
  - Fatigue [Unknown]
  - Photosensitivity reaction [Unknown]
  - Restlessness [Unknown]

NARRATIVE: CASE EVENT DATE: 2020
